FAERS Safety Report 7164831-X (Version None)
Quarter: 2010Q4

REPORT INFORMATION
  Report Type: 
  Country: None (occurrence: None)
  Receive Date: 20101215
  Receipt Date: 20101209
  Transmission Date: 20110411
  Serious: Yes (Disabling, Other)
  Sender: FDA-Public Use
  Company Number: US-MERCK-1006USA00660

PATIENT
  Age: 68 Year
  Sex: Female

DRUGS (4)
  1. FOSAMAX [Suspect]
     Indication: OSTEOPOROSIS
     Route: 048
     Dates: start: 19990701, end: 20071105
  2. FOSAMAX [Suspect]
     Indication: OSTEOPENIA
     Route: 048
     Dates: start: 19990701, end: 20071105
  3. FOSAMAX PLUS D [Suspect]
     Indication: OSTEOPOROSIS
     Route: 048
     Dates: start: 20080126, end: 20080701
  4. FOSAMAX PLUS D [Suspect]
     Indication: OSTEOPENIA
     Route: 048
     Dates: start: 20080126, end: 20080701

REACTIONS (8)
  - BONE DENSITY DECREASED [None]
  - FALL [None]
  - FEMUR FRACTURE [None]
  - HYPERTENSION [None]
  - INJURY [None]
  - LOOSE TOOTH [None]
  - STRESS FRACTURE [None]
  - TOOTH DISORDER [None]
